FAERS Safety Report 23589234 (Version 1)
Quarter: 2024Q1

REPORT INFORMATION
  Report Type: Spontaneous
  Country: ES (occurrence: ES)
  Receive Date: 20240303
  Receipt Date: 20240303
  Transmission Date: 20240410
  Serious: Yes (Death, Other)
  Sender: FDA-Public Use
  Company Number: ES-STRIDES ARCOLAB LIMITED-2024SP002475

PATIENT
  Age: 90 Year
  Sex: Female

DRUGS (3)
  1. AMPICILLIN TRIHYDRATE [Suspect]
     Active Substance: AMPICILLIN TRIHYDRATE
     Indication: Endocarditis
     Dosage: UNK
     Route: 065
  2. CEFTRIAXONE [Suspect]
     Active Substance: CEFTRIAXONE\CEFTRIAXONE SODIUM
     Indication: Endocarditis
     Dosage: UNK
     Route: 065
  3. DALBAVANCIN [Suspect]
     Active Substance: DALBAVANCIN
     Indication: Endocarditis
     Dosage: 1500 MILLIGRAM, (ONCE)
     Route: 065

REACTIONS (3)
  - Death [Fatal]
  - Treatment failure [Unknown]
  - Off label use [Unknown]
